FAERS Safety Report 17982697 (Version 3)
Quarter: 2020Q3

REPORT INFORMATION
  Report Type: Report from Study
  Country: US (occurrence: US)
  Receive Date: 20200706
  Receipt Date: 20200731
  Transmission Date: 20201103
  Serious: Yes (Other)
  Sender: FDA-Public Use
  Company Number: US-ASTELLAS-2020US011705

PATIENT
  Age: 76 Year
  Sex: Male

DRUGS (1)
  1. ENZALUTAMIDE [Suspect]
     Active Substance: ENZALUTAMIDE
     Indication: PROSTATE CANCER
     Route: 048
     Dates: start: 2020

REACTIONS (13)
  - Dizziness [Unknown]
  - Constipation [Recovered/Resolved]
  - Decreased appetite [Unknown]
  - Foreign body in throat [Unknown]
  - Abdominal discomfort [Unknown]
  - Fatigue [Unknown]
  - Prostatic specific antigen increased [Not Recovered/Not Resolved]
  - Hot flush [Unknown]
  - Laziness [Unknown]
  - Faeces discoloured [Not Recovered/Not Resolved]
  - Nausea [Recovered/Resolved]
  - Product use complaint [Unknown]
  - Arthralgia [Unknown]

NARRATIVE: CASE EVENT DATE: 202006
